FAERS Safety Report 24707049 (Version 2)
Quarter: 2024Q4

REPORT INFORMATION
  Report Type: Spontaneous
  Country: IT (occurrence: IT)
  Receive Date: 20241206
  Receipt Date: 20241210
  Transmission Date: 20250115
  Serious: Yes (Other)
  Sender: NOVARTIS
  Company Number: IT-002147023-NVSC2024IT230813

PATIENT
  Age: 61 Year
  Sex: Male

DRUGS (7)
  1. MIDOSTAURIN [Suspect]
     Active Substance: MIDOSTAURIN
     Indication: Advanced systemic mastocytosis
     Dosage: 100 MG, Q12H
     Route: 065
     Dates: start: 202303
  2. MIDOSTAURIN [Suspect]
     Active Substance: MIDOSTAURIN
     Indication: Chronic myelomonocytic leukaemia
     Dosage: 50 MG, BID (FOR 10 DAYS)
     Route: 065
  3. MIDOSTAURIN [Suspect]
     Active Substance: MIDOSTAURIN
     Dosage: 100 MG, BID
     Route: 065
  4. MIDOSTAURIN [Suspect]
     Active Substance: MIDOSTAURIN
     Dosage: 50 MG, BID
     Route: 065
  5. MIDOSTAURIN [Suspect]
     Active Substance: MIDOSTAURIN
     Dosage: 100 MG, BID
     Route: 065
  6. CYCLOSPORINE [Concomitant]
     Active Substance: CYCLOSPORINE
     Indication: Prophylaxis against graft versus host disease
     Dosage: UNK
     Route: 065
  7. MYCOPHENOLATE SODIUM [Concomitant]
     Active Substance: MYCOPHENOLATE SODIUM
     Indication: Prophylaxis against graft versus host disease
     Dosage: UNK
     Route: 065

REACTIONS (6)
  - Nausea [Recovered/Resolved]
  - Vomiting [Unknown]
  - Graft versus host disease in skin [Unknown]
  - Haematotoxicity [Unknown]
  - White blood cell count decreased [Unknown]
  - Neutrophil count decreased [Unknown]
